FAERS Safety Report 19068606 (Version 1)
Quarter: 2021Q1

REPORT INFORMATION
  Report Type: Spontaneous
  Country: US (occurrence: US)
  Receive Date: 20210329
  Receipt Date: 20210329
  Transmission Date: 20210420
  Serious: No
  Sender: FDA-Public Use
  Company Number: US-MYLANLABS-2021M1014794

PATIENT
  Age: 64 Year
  Sex: Female

DRUGS (1)
  1. MESALAMINE RECTAL SUPPOSITORIES [Suspect]
     Active Substance: MESALAMINE
     Indication: COLITIS ULCERATIVE
     Dosage: ONE AT BEDTIME
     Route: 054

REACTIONS (1)
  - Administration site discomfort [Not Recovered/Not Resolved]
